FAERS Safety Report 16547051 (Version 1)
Quarter: 2019Q3

REPORT INFORMATION
  Report Type: Spontaneous
  Country: GB (occurrence: GB)
  Receive Date: 20190709
  Receipt Date: 20190709
  Transmission Date: 20191004
  Serious: Yes (Other)
  Sender: FDA-Public Use
  Company Number: GB-MYLANLABS-2019M1062620

PATIENT
  Age: 46 Year
  Sex: Female

DRUGS (6)
  1. OXYCODONE [Concomitant]
     Active Substance: OXYCODONE
     Indication: PAIN
     Dosage: UNK
     Dates: end: 201811
  2. CIPROFLOXACIN. [Suspect]
     Active Substance: CIPROFLOXACIN
     Indication: PRODUCT USED FOR UNKNOWN INDICATION
     Dosage: 1500 MILLIGRAM, QD
     Route: 048
     Dates: start: 20181108, end: 20181117
  3. PARACETAMOL [Concomitant]
     Active Substance: ACETAMINOPHEN
     Indication: PAIN
     Dosage: ALTERNATE DOSES EVERY 2 HOURS WITH IBUPROFEN
     Dates: end: 201811
  4. IBUPROFEN. [Concomitant]
     Active Substance: IBUPROFEN
     Indication: PAIN
     Dosage: ALTERNATE DOSES EVERY 2 HOURS WITH PARACETAMOL FOR 1 WEEK THEN AS NEEDED 2 UP TO 3 TIMES PER DAY.
     Dates: end: 201811
  5. CODEINE [Concomitant]
     Active Substance: CODEINE
     Indication: PAIN
     Dosage: 2 DOSAGE FORM, QD (FOR 3 DAYS AFTER THE OXYCODONE FINISHED)
     Dates: end: 201811
  6. LINEZOLID. [Suspect]
     Active Substance: LINEZOLID
     Indication: PRODUCT USED FOR UNKNOWN INDICATION
     Route: 048
     Dates: start: 20181108, end: 20181117

REACTIONS (5)
  - Sleep disorder [Recovered/Resolved]
  - Glossodynia [Recovered/Resolved]
  - Appetite disorder [Recovered/Resolved]
  - Diarrhoea [Recovered/Resolved]
  - Oropharyngeal pain [Recovered/Resolved]

NARRATIVE: CASE EVENT DATE: 201811
